FAERS Safety Report 24554470 (Version 1)
Quarter: 2024Q4

REPORT INFORMATION
  Report Type: Spontaneous
  Country: PL (occurrence: PL)
  Receive Date: 20241028
  Receipt Date: 20241028
  Transmission Date: 20250114
  Serious: Yes (Life-Threatening, Hospitalization, Other)
  Sender: RK PHARMA
  Company Number: PL-RK PHARMA, INC-20241000069

PATIENT

DRUGS (1)
  1. CARBAMAZEPINE [Suspect]
     Active Substance: CARBAMAZEPINE
     Indication: Suicide attempt
     Dosage: 200 MILLIGRAM, SEVERAL DOZEN TABLETS
     Route: 048

REACTIONS (2)
  - Myocardial ischaemia [Recovered/Resolved]
  - Intentional overdose [Recovered/Resolved]
